FAERS Safety Report 20349266 (Version 1)
Quarter: 2022Q1

REPORT INFORMATION
  Report Type: Other
  Country: US (occurrence: None)
  Receive Date: 20220119
  Receipt Date: 20220119
  Transmission Date: 20220423
  Serious: Yes (Death)
  Sender: FDA-Public Use
  Company Number: US-ROCHE-2998136

PATIENT
  Sex: Male

DRUGS (1)
  1. OCREVUS [Suspect]
     Active Substance: OCRELIZUMAB
     Indication: Primary progressive multiple sclerosis
     Dosage: 13/OCT/2021, 20/NOV/2020, 22/MAY/2020, 22/APR/2019, 22/NOV/2019, 09/OCT/2018, 09/APR/2019, 15/APR/20
     Route: 065

REACTIONS (2)
  - Dementia Alzheimer^s type [Fatal]
  - Pneumonia [Fatal]
